FAERS Safety Report 4477195-7 (Version None)
Quarter: 2004Q4

REPORT INFORMATION
  Report Type: 
  Country: None (occurrence: None)
  Receive Date: 20041013
  Receipt Date: 20040819
  Transmission Date: 20050328
  Serious: Yes (Hospitalization, Other)
  Sender: FDA-Public Use
  Company Number: HQWYE452620AUG04

PATIENT
  Age: 47 Year
  Sex: Female

DRUGS (16)
  1. RHEUMATREX [Suspect]
     Indication: RHEUMATOID ARTHRITIS
     Dosage: 6 +8 + 4 + 8 + 10 MG 1X PER 1 WK ORAL
     Route: 048
     Dates: start: 20020201, end: 20020501
  2. RHEUMATREX [Suspect]
     Indication: RHEUMATOID ARTHRITIS
     Dosage: 6 +8 + 4 + 8 + 10 MG 1X PER 1 WK ORAL
     Route: 048
     Dates: start: 20020501, end: 20020901
  3. RHEUMATREX [Suspect]
     Indication: RHEUMATOID ARTHRITIS
     Dosage: 6 +8 + 4 + 8 + 10 MG 1X PER 1 WK ORAL
     Route: 048
     Dates: start: 20020901, end: 20021001
  4. RHEUMATREX [Suspect]
     Indication: RHEUMATOID ARTHRITIS
     Dosage: 6 +8 + 4 + 8 + 10 MG 1X PER 1 WK ORAL
     Route: 048
     Dates: start: 20021001, end: 20030301
  5. RHEUMATREX [Suspect]
     Indication: RHEUMATOID ARTHRITIS
     Dosage: 6 +8 + 4 + 8 + 10 MG 1X PER 1 WK ORAL
     Route: 048
     Dates: start: 20030301
  6. ALFAROL (ALFACALCIDOL, ) [Suspect]
     Indication: OSTEOPOROSIS
     Dosage: 5 UG 1X PER 1 WK ORAL
     Route: 048
     Dates: end: 20040620
  7. RISEDRONATE SODIUM [Suspect]
     Indication: OSTEOPOROSIS
     Dosage: 2.5 MG 1X PER 1 DAY ORAL
     Route: 048
     Dates: start: 20040101, end: 20040610
  8. DIAMOX [Suspect]
     Indication: GLAUCOMA
     Dosage: 500 MG 1 X PER 1 DAY ORAL
     Route: 048
     Dates: start: 20031115, end: 20040610
  9. FOLIC ACID [Suspect]
     Indication: FOLATE DEFICIENCY
     Dosage: 5 MG 1 X PER 1 DAY ORAL
     Route: 048
     Dates: start: 20040301, end: 20040603
  10. GLUCONSAN K (POTASSIUM GLUCONATE, ) [Suspect]
     Indication: GLAUCOMA
     Dosage: 4 G/ DAY ORAL
     Route: 048
     Dates: start: 20031115, end: 20040610
  11. ISONIAZID [Suspect]
     Indication: TUBERCULOSIS PROPHYLAXIS
     Dosage: 100 MG 1X PER 1 DAY ORAL
     Route: 048
     Dates: start: 20031114, end: 20040616
  12. LASIX [Suspect]
     Indication: OEDEMA
     Dosage: 10 MG 1X PER 1 DAY ORAL
     Route: 048
     Dates: end: 20040610
  13. PARIET (RABEPRAZOLE, 0 [Suspect]
     Indication: GASTRIC ULCER
     Dosage: 10 MG 1X PER 1 DAY ORAL
     Route: 048
     Dates: start: 20031208, end: 20040610
  14. VITAMEDIN (BENFOTIAMINE/CYANOCOBALAMIN/PYRIDOXINE HYDROCHLORIDE, CAPSU [Suspect]
     Indication: HYPOVITAMINOSIS
     Dosage: 25 MG 1X PER 1 DAY ORAL
     Route: 048
     Dates: start: 20031119, end: 20040610
  15. PREDNISOLONE [Concomitant]
  16. REMICADE [Concomitant]

REACTIONS (8)
  - DRUG ERUPTION [None]
  - EOSINOPHIL COUNT INCREASED [None]
  - EOSINOPHIL PERCENTAGE INCREASED [None]
  - RASH ERYTHEMATOUS [None]
  - RASH PAPULAR [None]
  - RASH PRURITIC [None]
  - URTICARIA [None]
  - WHITE BLOOD CELL COUNT INCREASED [None]
